FAERS Safety Report 25628112 (Version 1)
Quarter: 2025Q3

REPORT INFORMATION
  Report Type: Spontaneous
  Country: EU (occurrence: EU)
  Receive Date: 20250731
  Receipt Date: 20250731
  Transmission Date: 20251020
  Serious: Yes (Hospitalization)
  Sender: MYLAN
  Company Number: EU-ASTRAZENECA-202507GLO006741IT

PATIENT
  Age: 63 Year
  Sex: Male
  Weight: 83 kg

DRUGS (28)
  1. ATENOLOL [Suspect]
     Active Substance: ATENOLOL
     Indication: Hypertension
  2. ATENOLOL [Suspect]
     Active Substance: ATENOLOL
     Route: 048
  3. ATENOLOL [Suspect]
     Active Substance: ATENOLOL
     Route: 048
  4. ATENOLOL [Suspect]
     Active Substance: ATENOLOL
  5. UNSPECIFIED INGREDIENT [Concomitant]
     Active Substance: UNSPECIFIED INGREDIENT
     Indication: Antacid therapy
     Dosage: 40 MILLIGRAM, QD (40 MG PER DAY)
  6. UNSPECIFIED INGREDIENT [Concomitant]
     Active Substance: UNSPECIFIED INGREDIENT
     Dosage: 40 MILLIGRAM, QD (40 MG PER DAY)
     Route: 048
  7. UNSPECIFIED INGREDIENT [Concomitant]
     Active Substance: UNSPECIFIED INGREDIENT
     Dosage: 40 MILLIGRAM, QD (40 MG PER DAY)
     Route: 048
  8. UNSPECIFIED INGREDIENT [Concomitant]
     Active Substance: UNSPECIFIED INGREDIENT
     Dosage: 40 MILLIGRAM, QD (40 MG PER DAY)
  9. AMLODIPINE\INDAPAMIDE\PERINDOPRIL [Concomitant]
     Active Substance: AMLODIPINE\INDAPAMIDE\PERINDOPRIL
     Indication: Hypertension
  10. AMLODIPINE\INDAPAMIDE\PERINDOPRIL [Concomitant]
     Active Substance: AMLODIPINE\INDAPAMIDE\PERINDOPRIL
     Route: 048
  11. AMLODIPINE\INDAPAMIDE\PERINDOPRIL [Concomitant]
     Active Substance: AMLODIPINE\INDAPAMIDE\PERINDOPRIL
     Route: 048
  12. AMLODIPINE\INDAPAMIDE\PERINDOPRIL [Concomitant]
     Active Substance: AMLODIPINE\INDAPAMIDE\PERINDOPRIL
  13. HUMALOG [Concomitant]
     Active Substance: INSULIN LISPRO
     Indication: Type 2 diabetes mellitus
  14. HUMALOG [Concomitant]
     Active Substance: INSULIN LISPRO
     Route: 065
  15. HUMALOG [Concomitant]
     Active Substance: INSULIN LISPRO
     Route: 065
  16. HUMALOG [Concomitant]
     Active Substance: INSULIN LISPRO
  17. TOUJEO [Concomitant]
     Active Substance: INSULIN GLARGINE
     Indication: Type 2 diabetes mellitus
  18. TOUJEO [Concomitant]
     Active Substance: INSULIN GLARGINE
     Route: 065
  19. TOUJEO [Concomitant]
     Active Substance: INSULIN GLARGINE
     Route: 065
  20. TOUJEO [Concomitant]
     Active Substance: INSULIN GLARGINE
  21. MAGNESIUM [Concomitant]
     Active Substance: MAGNESIUM
     Indication: Magnesium deficiency
     Dosage: 2.25 MILLIGRAM, QD
     Dates: start: 20250609
  22. MAGNESIUM [Concomitant]
     Active Substance: MAGNESIUM
     Dosage: 2.25 MILLIGRAM, QD
     Route: 048
     Dates: start: 20250609
  23. MAGNESIUM [Concomitant]
     Active Substance: MAGNESIUM
     Dosage: 2.25 MILLIGRAM, QD
     Route: 048
     Dates: start: 20250609
  24. MAGNESIUM [Concomitant]
     Active Substance: MAGNESIUM
     Dosage: 2.25 MILLIGRAM, QD
     Dates: start: 20250609
  25. CEFTRIAXONE [Concomitant]
     Active Substance: CEFTRIAXONE
     Indication: Bacterial infection
     Dates: start: 20250617, end: 20250624
  26. CEFTRIAXONE [Concomitant]
     Active Substance: CEFTRIAXONE
     Route: 065
     Dates: start: 20250617, end: 20250624
  27. CEFTRIAXONE [Concomitant]
     Active Substance: CEFTRIAXONE
     Route: 065
     Dates: start: 20250617, end: 20250624
  28. CEFTRIAXONE [Concomitant]
     Active Substance: CEFTRIAXONE
     Dates: start: 20250617, end: 20250624

REACTIONS (1)
  - Cholangitis [Not Recovered/Not Resolved]

NARRATIVE: CASE EVENT DATE: 20250630
